FAERS Safety Report 7970500-6 (Version None)
Quarter: 2011Q4

REPORT INFORMATION
  Report Type: 
  Country: None (occurrence: None)
  Receive Date: 20111212
  Receipt Date: 20110414
  Transmission Date: 20120403
  Serious: No
  Sender: FDA-Public Use
  Company Number: US-ABBOTT-11P-163-0720308-00

PATIENT
  Sex: Female
  Weight: 59.928 kg

DRUGS (3)
  1. VICODIN ES [Suspect]
     Indication: TOOTHACHE
     Dosage: 1/4 TABLET
     Dates: start: 20110401, end: 20110401
  2. VICODIN ES [Suspect]
     Dosage: ES
     Route: 048
     Dates: start: 19980101, end: 19980101
  3. VICODIN [Suspect]
     Indication: PRODUCT USED FOR UNKNOWN INDICATION
     Dates: start: 19980101, end: 19980101

REACTIONS (3)
  - VASOCONSTRICTION [None]
  - NAUSEA [None]
  - DIZZINESS [None]
